FAERS Safety Report 15808147 (Version 1)
Quarter: 2019Q1

REPORT INFORMATION
  Report Type: Spontaneous
  Country: US (occurrence: US)
  Receive Date: 20190110
  Receipt Date: 20190110
  Transmission Date: 20190417
  Serious: No
  Sender: FDA-Public Use
  Company Number: US-SHIRE-US201900827

PATIENT
  Age: 71 Year
  Sex: Female
  Weight: 54.42 kg

DRUGS (1)
  1. XIIDRA [Suspect]
     Active Substance: LIFITEGRAST
     Indication: DRY EYE
     Dosage: 1 GTT, 2X/DAY:BID
     Dates: start: 20190104, end: 20190105

REACTIONS (1)
  - Instillation site hypersensitivity [Recovered/Resolved]

NARRATIVE: CASE EVENT DATE: 20190105
